FAERS Safety Report 9749257 (Version 1)
Quarter: 2013Q4

REPORT INFORMATION
  Report Type: Spontaneous
  Country: US (occurrence: US)
  Receive Date: 20131212
  Receipt Date: 20131212
  Transmission Date: 20140711
  Serious: No
  Sender: FDA-Public Use
  Company Number: US-TEVA-393854USA

PATIENT
  Sex: Female
  Weight: 65.38 kg

DRUGS (1)
  1. PARAGARD 380A [Suspect]
     Indication: CONTRACEPTION
     Route: 015
     Dates: end: 20130319

REACTIONS (4)
  - General physical health deterioration [Unknown]
  - Abdominal distension [Unknown]
  - Medical device complication [Unknown]
  - Bacterial vaginosis [Unknown]
